FAERS Safety Report 25257352 (Version 2)
Quarter: 2025Q3

REPORT INFORMATION
  Report Type: Spontaneous
  Country: US (occurrence: US)
  Receive Date: 20250430
  Receipt Date: 20250722
  Transmission Date: 20251021
  Serious: No
  Sender: PFIZER
  Company Number: US-PFIZER INC-202500090978

PATIENT
  Age: 76 Year
  Sex: Male
  Weight: 108.86 kg

DRUGS (1)
  1. VYNDAMAX [Suspect]
     Active Substance: TAFAMIDIS
     Indication: Amyloidosis
     Dosage: 61 MG, 1X/DAY IN THE MORNING
     Route: 048

REACTIONS (3)
  - Feeling abnormal [Unknown]
  - Chest discomfort [Unknown]
  - Asthenia [Unknown]
